FAERS Safety Report 10038587 (Version 1)
Quarter: 2014Q1

REPORT INFORMATION
  Report Type: Spontaneous
  Country: US (occurrence: None)
  Receive Date: 20140306
  Receipt Date: 20140306
  Transmission Date: 20141002
  Serious: Yes (Other)
  Sender: FDA-Public Use
  Company Number: 163-21880-12091554

PATIENT
  Age: 74 Year
  Sex: Male
  Weight: 79.47 kg

DRUGS (8)
  1. REVLIMID [Suspect]
     Indication: LYMPHOMA
     Route: 048
     Dates: start: 201201
  2. ASA (ACETYLSALICYLIC ACID) [Concomitant]
  3. GABAPENTIN (GABAPENTIN) [Concomitant]
  4. ACYCLOVIR (ACICLOVIR) [Concomitant]
  5. OXYCODONE (OXYCODONE) [Concomitant]
  6. LEVOTHYROXINE (LEVOTHYROXINE) [Concomitant]
  7. AVODART (DUTASTERIDE) [Concomitant]
  8. FLOMAX [Concomitant]

REACTIONS (2)
  - Neutropenia [None]
  - Thrombocytopenia [None]
